FAERS Safety Report 17803408 (Version 1)
Quarter: 2020Q2

REPORT INFORMATION
  Report Type: Spontaneous
  Country: CN (occurrence: CN)
  Receive Date: 20200519
  Receipt Date: 20200519
  Transmission Date: 20200714
  Serious: Yes (Other)
  Sender: FDA-Public Use
  Company Number: CN-PFIZER INC-2020196038

PATIENT
  Age: 48 Year
  Sex: Male
  Weight: 63 kg

DRUGS (2)
  1. SODIUM CHLORIDE. [Concomitant]
     Active Substance: SODIUM CHLORIDE
     Indication: ORAL INFECTION
     Dosage: 50 ML, 3X/DAY
     Route: 040
     Dates: start: 20200513, end: 20200513
  2. TAZOCIN [Suspect]
     Active Substance: PIPERACILLIN SODIUM\TAZOBACTAM SODIUM
     Indication: ORAL INFECTION
     Dosage: 4.5 G, 3X/DAY
     Route: 040
     Dates: start: 20200513, end: 20200513

REACTIONS (1)
  - Chest discomfort [Recovering/Resolving]

NARRATIVE: CASE EVENT DATE: 20200513
